FAERS Safety Report 23058560 (Version 1)
Quarter: 2023Q4

REPORT INFORMATION
  Report Type: Spontaneous
  Country: US (occurrence: None)
  Receive Date: 20231011
  Receipt Date: 20231011
  Transmission Date: 20240109
  Serious: No
  Sender: FDA-Public Use
  Company Number: None

PATIENT
  Sex: 0

DRUGS (1)
  1. TADALAFIL [Suspect]
     Active Substance: TADALAFIL

REACTIONS (4)
  - Headache [None]
  - Erythema [None]
  - Erythema [None]
  - Feeling hot [None]
